FAERS Safety Report 6700023-3 (Version None)
Quarter: 2010Q2

REPORT INFORMATION
  Report Type: 
  Country: None (occurrence: None)
  Receive Date: 20100428
  Receipt Date: 20100416
  Transmission Date: 20101027
  Serious: Yes (Hospitalization)
  Sender: FDA-Public Use
  Company Number: PHHY2010US24687

PATIENT
  Sex: Female

DRUGS (1)
  1. EXJADE [Suspect]
     Dosage: 1500 MG, QD
     Route: 048

REACTIONS (5)
  - ABDOMINAL WALL OPERATION [None]
  - BLOOD POTASSIUM INCREASED [None]
  - DIARRHOEA [None]
  - DRY SKIN [None]
  - HEADACHE [None]
